FAERS Safety Report 16327713 (Version 1)
Quarter: 2019Q2

REPORT INFORMATION
  Report Type: Spontaneous
  Country: US (occurrence: US)
  Receive Date: 20190517
  Receipt Date: 20190517
  Transmission Date: 20190711
  Serious: No
  Sender: FDA-Public Use
  Company Number: US-TEIKOKU PHARMA USA-TPU2019-00416

PATIENT
  Sex: Female
  Weight: 68.1 kg

DRUGS (1)
  1. LIDOCAINE PATCH [Suspect]
     Active Substance: LIDOCAINE
     Indication: BACK PAIN
     Dosage: PUT PATCH ON BACK AND LOWER SPINE
     Dates: start: 2016

REACTIONS (1)
  - Insurance issue [Unknown]
